FAERS Safety Report 6343304-8 (Version None)
Quarter: 2009Q3

REPORT INFORMATION
  Report Type: 
  Country: None (occurrence: None)
  Receive Date: 20090908
  Receipt Date: 20090828
  Transmission Date: 20100115
  Serious: Yes (Other)
  Sender: FDA-Public Use
  Company Number: PHEH2007US11452

PATIENT
  Sex: Male

DRUGS (5)
  1. AREDIA [Suspect]
     Dosage: MONTHLY
  2. MELPHALAN HYDROCHLORIDE [Concomitant]
  3. THALIDOMIDE [Concomitant]
  4. PREDNISONE TAB [Concomitant]
  5. MELPHALAN HYDROCHLORIDE [Concomitant]

REACTIONS (10)
  - ABSCESS DRAINAGE [None]
  - ANHEDONIA [None]
  - ANXIETY [None]
  - BONE PAIN [None]
  - DISABILITY [None]
  - INJURY [None]
  - OSTEONECROSIS [None]
  - PAIN [None]
  - PANCYTOPENIA [None]
  - TOOTH EXTRACTION [None]
